FAERS Safety Report 7382946-8 (Version None)
Quarter: 2011Q1

REPORT INFORMATION
  Report Type: 
  Country: None (occurrence: None)
  Receive Date: 20110325
  Receipt Date: 20110325
  Transmission Date: 20110831
  Serious: No
  Sender: FDA-Public Use
  Company Number: None

PATIENT
  Age: 49 Year
  Sex: Male
  Weight: 68.0396 kg

DRUGS (1)
  1. PEGASYS [Suspect]
     Dates: start: 20070301, end: 20080201

REACTIONS (14)
  - DISTURBANCE IN ATTENTION [None]
  - CONDITION AGGRAVATED [None]
  - FEELING ABNORMAL [None]
  - SOMNOLENCE [None]
  - ACTIVITIES OF DAILY LIVING IMPAIRED [None]
  - ASTHENIA [None]
  - FATIGUE [None]
  - IMPAIRED WORK ABILITY [None]
  - THINKING ABNORMAL [None]
  - INCORRECT DOSE ADMINISTERED [None]
  - MEMORY IMPAIRMENT [None]
  - TRAUMATIC BRAIN INJURY [None]
  - NERVOUS SYSTEM DISORDER [None]
  - MENTAL DISORDER [None]
